FAERS Safety Report 7184350-4 (Version None)
Quarter: 2010Q4

REPORT INFORMATION
  Report Type: 
  Country: None (occurrence: None)
  Receive Date: 20101222
  Receipt Date: 20091228
  Transmission Date: 20110411
  Serious: No
  Sender: FDA-Public Use
  Company Number: US-PFIZER INC-2009315154

PATIENT
  Sex: Female
  Weight: 48.5 kg

DRUGS (1)
  1. FLUCONAZOLE [Suspect]
     Indication: LUNG INFECTION
     Dosage: UNK
     Route: 048
     Dates: start: 20090902, end: 20091105

REACTIONS (4)
  - EATING DISORDER [None]
  - HEADACHE [None]
  - PHARYNGEAL DISORDER [None]
  - WEIGHT DECREASED [None]
